FAERS Safety Report 18486653 (Version 1)
Quarter: 2020Q4

REPORT INFORMATION
  Report Type: Spontaneous
  Country: US (occurrence: US)
  Receive Date: 20201110
  Receipt Date: 20201110
  Transmission Date: 20210114
  Serious: Yes (Other)
  Sender: FDA-Public Use
  Company Number: US-BAUSCH-BL-2020-031890

PATIENT
  Age: 64 Year
  Sex: Female
  Weight: 67.19 kg

DRUGS (3)
  1. LEVOTHYROXINE. [Concomitant]
     Active Substance: LEVOTHYROXINE
     Indication: PRODUCT USED FOR UNKNOWN INDICATION
     Route: 048
  2. LACRISERT [Suspect]
     Active Substance: HYDROXYPROPYL CELLULOSE
     Dosage: 1 PER DAY
     Route: 047
  3. LACRISERT [Suspect]
     Active Substance: HYDROXYPROPYL CELLULOSE
     Indication: DRY EYE
     Dosage: 3 PER DAY
     Route: 047

REACTIONS (6)
  - Intentional product use issue [Unknown]
  - Coeliac disease [Unknown]
  - Corneal erosion [Unknown]
  - Thyroid disorder [Unknown]
  - Product availability issue [Unknown]
  - Corneal abrasion [Unknown]
